FAERS Safety Report 16745099 (Version 1)
Quarter: 2019Q4

REPORT INFORMATION
  Report Type: Spontaneous
  Country: US (occurrence: US)
  Receive Date: 20190827
  Receipt Date: 20190827
  Transmission Date: 20200122
  Serious: Yes (Other)
  Sender: FDA-Public Use
  Company Number: None

PATIENT
  Age: 18 Year
  Sex: Male
  Weight: 86.4 kg

DRUGS (5)
  1. SYNALAR [Concomitant]
     Active Substance: FLUOCINOLONE ACETONIDE
  2. TRIANEX [Concomitant]
     Active Substance: TRIAMCINOLONE ACETONIDE
  3. DESONIDE. [Concomitant]
     Active Substance: DESONIDE
  4. EUCRISA [Suspect]
     Active Substance: CRISABOROLE
     Indication: DERMATITIS ATOPIC
     Route: 061
     Dates: start: 20190817, end: 20190827
  5. EUCRISA [Suspect]
     Active Substance: CRISABOROLE
     Indication: ECZEMA
     Route: 061
     Dates: start: 20190817, end: 20190827

REACTIONS (1)
  - Application site pain [None]

NARRATIVE: CASE EVENT DATE: 20190826
